FAERS Safety Report 5054235-8 (Version None)
Quarter: 2006Q3

REPORT INFORMATION
  Report Type: 
  Country: None (occurrence: None)
  Receive Date: 20060713
  Receipt Date: 20060418
  Transmission Date: 20061208
  Serious: Yes (Hospitalization, Other)
  Sender: FDA-Public Use
  Company Number: 200612720BWH

PATIENT
  Age: 77 Year
  Sex: Male
  Weight: 46.2669 kg

DRUGS (1)
  1. NEXAVAR [Suspect]
     Indication: RENAL CELL CARCINOMA STAGE UNSPECIFIED
     Dosage: 200 MG, BID, ORAL
     Route: 048
     Dates: start: 20060124

REACTIONS (6)
  - CYANOSIS [None]
  - ERYTHEMA [None]
  - HYPOTENSION [None]
  - LARGE INTESTINE PERFORATION [None]
  - SKIN EXFOLIATION [None]
  - WOUND DEHISCENCE [None]
